FAERS Safety Report 10133624 (Version 2)
Quarter: 2014Q2

REPORT INFORMATION
  Report Type: Spontaneous
  Country: JP (occurrence: JP)
  Receive Date: 20140428
  Receipt Date: 20140515
  Transmission Date: 20141212
  Serious: Yes (Hospitalization)
  Sender: FDA-Public Use
  Company Number: JP-GLAXOSMITHKLINE-B0988787A

PATIENT
  Age: 41 Year
  Sex: Female

DRUGS (3)
  1. LAMICTAL [Suspect]
     Indication: EPILEPSY
     Dosage: 25MG PER DAY
     Route: 048
     Dates: start: 20121028, end: 20121205
  2. EXCEGRAN [Suspect]
     Indication: EPILEPSY
     Dosage: 200MG PER DAY
     Route: 048
     Dates: start: 20121028, end: 20121206
  3. DEPAKENE-R [Concomitant]
     Indication: EPILEPSY
     Route: 048

REACTIONS (13)
  - Drug reaction with eosinophilia and systemic symptoms [Recovered/Resolved]
  - Palpitations [Unknown]
  - Musculoskeletal discomfort [Unknown]
  - Thyroiditis [Unknown]
  - Anti-thyroid antibody positive [Unknown]
  - Tri-iodothyronine free increased [Unknown]
  - Thyroxine free increased [Unknown]
  - Blood thyroid stimulating hormone decreased [Unknown]
  - Pyrexia [Recovering/Resolving]
  - Rash [Recovering/Resolving]
  - Liver disorder [Recovering/Resolving]
  - Eosinophil count increased [Recovering/Resolving]
  - Drug eruption [Recovering/Resolving]
